FAERS Safety Report 21099825 (Version 1)
Quarter: 2022Q3

REPORT INFORMATION
  Report Type: Spontaneous
  Country: US (occurrence: None)
  Receive Date: 20220719
  Receipt Date: 20220719
  Transmission Date: 20221027
  Serious: No
  Sender: FDA-Public Use
  Company Number: None

PATIENT
  Age: 67 Year
  Sex: Male

DRUGS (1)
  1. OTEZLA [Suspect]
     Active Substance: APREMILAST
     Indication: Psoriatic arthropathy
     Dosage: 30 MG TWICE DAILY ORAL
     Route: 048
     Dates: start: 20220714

REACTIONS (2)
  - International normalised ratio increased [None]
  - Extra dose administered [None]

NARRATIVE: CASE EVENT DATE: 20220714
